FAERS Safety Report 5662720-0 (Version None)
Quarter: 2008Q1

REPORT INFORMATION
  Report Type: 
  Country: None (occurrence: None)
  Receive Date: 20080313
  Receipt Date: 20080306
  Transmission Date: 20080703
  Serious: Yes (Hospitalization)
  Sender: FDA-Public Use
  Company Number: JP-NOVOPROD-272975

PATIENT
  Age: 73 Year
  Sex: Male
  Weight: 82 kg

DRUGS (1)
  1. NOVORAPID CHU FLEXPEN [Suspect]
     Indication: INSULIN-REQUIRING TYPE 2 DIABETES MELLITUS
     Dosage: 42 IU, QD
     Route: 058
     Dates: start: 20050901

REACTIONS (3)
  - ABDOMINAL ABSCESS [None]
  - COLON CANCER [None]
  - INFLAMMATION [None]
